FAERS Safety Report 4960442-2 (Version None)
Quarter: 2006Q2

REPORT INFORMATION
  Report Type: 
  Country: None (occurrence: None)
  Receive Date: 20060403
  Receipt Date: 20060328
  Transmission Date: 20061013
  Serious: Yes (Life-Threatening, Hospitalization)
  Sender: FDA-Public Use
  Company Number: US-GLAXOSMITHKLINE-A0599366A

PATIENT
  Age: 15 Month
  Sex: Female

DRUGS (1)
  1. WELLBUTRIN [Suspect]
     Indication: ACCIDENTAL EXPOSURE
     Route: 048
     Dates: start: 20060301, end: 20060301

REACTIONS (5)
  - ACCIDENTAL DRUG INTAKE BY CHILD [None]
  - ACCIDENTAL EXPOSURE [None]
  - CONVULSION [None]
  - PNEUMONIA ASPIRATION [None]
  - RESPIRATORY ARREST [None]
